FAERS Safety Report 6064669-0 (Version None)
Quarter: 2009Q1

REPORT INFORMATION
  Report Type: 
  Country: None (occurrence: None)
  Receive Date: 20090204
  Receipt Date: 20080421
  Transmission Date: 20090719
  Serious: Yes (Life-Threatening, Hospitalization, Other)
  Sender: FDA-Public Use
  Company Number: A0721370A

PATIENT
  Age: 78 Year
  Sex: Female
  Weight: 68.2 kg

DRUGS (3)
  1. ARIXTRA [Suspect]
     Dosage: 2.5MG PER DAY
     Route: 058
     Dates: start: 20071101
  2. ENALAPRIL MALEATE [Concomitant]
  3. PRIMIDONE [Concomitant]

REACTIONS (3)
  - DEEP VEIN THROMBOSIS [None]
  - HAEMATOMA [None]
  - PULMONARY EMBOLISM [None]
